FAERS Safety Report 6049155-6 (Version None)
Quarter: 2009Q1

REPORT INFORMATION
  Report Type: 
  Country: None (occurrence: None)
  Receive Date: 20090123
  Receipt Date: 20090112
  Transmission Date: 20090719
  Serious: Yes (Hospitalization)
  Sender: FDA-Public Use
  Company Number: NL-ELI_LILLY_AND_COMPANY-NL200901002283

PATIENT
  Age: 24 Year
  Sex: Male

DRUGS (4)
  1. ZYPREXA [Suspect]
     Indication: PSYCHOTIC DISORDER
     Dosage: 15 MG, DAILY (1/D)
     Route: 048
  2. ZYPREXA [Suspect]
     Dosage: 5 MG, DAILY (1/D)
     Route: 048
  3. ZYPREXA [Suspect]
     Dosage: 15 MG, DAILY (1/D)
     Route: 048
  4. ZYPREXA [Suspect]
     Dosage: 25 MG, DAILY (1/D)
     Route: 048

REACTIONS (3)
  - DISORIENTATION [None]
  - DYSPHEMIA [None]
  - PSYCHOTIC DISORDER [None]
